FAERS Safety Report 6369364-6 (Version None)
Quarter: 2009Q3

REPORT INFORMATION
  Report Type: 
  Country: None (occurrence: None)
  Receive Date: 20090917
  Receipt Date: 20090904
  Transmission Date: 20100115
  Serious: Yes (Other)
  Sender: FDA-Public Use
  Company Number: A0806736A

PATIENT
  Age: 33 Year
  Sex: Male

DRUGS (7)
  1. CHLORPHENIRAMINE MALEATE + PARACETAMOL + PSEUDOEPHEDRINE HCL (CHLORPHE [Suspect]
     Indication: DRUG USE FOR UNKNOWN INDICATION
  2. OXYMORPHONE HYDROCHLORIDE [Concomitant]
  3. OXYCODONE + PARACETAMOL [Concomitant]
  4. GABAPENTIN [Concomitant]
  5. ZOLPIDEM TARTRATE [Concomitant]
  6. CLONAZEPAM [Concomitant]
  7. TIZANIDINE HYDROCHLORIDE [Concomitant]

REACTIONS (5)
  - HEADACHE [None]
  - LOSS OF CONSCIOUSNESS [None]
  - MOUTH HAEMORRHAGE [None]
  - NAUSEA [None]
  - ROAD TRAFFIC ACCIDENT [None]
